FAERS Safety Report 4826367-8 (Version None)
Quarter: 2005Q4

REPORT INFORMATION
  Report Type: 
  Country: None (occurrence: None)
  Receive Date: 20051111
  Receipt Date: 20051019
  Transmission Date: 20060501
  Serious: Yes (Hospitalization)
  Sender: FDA-Public Use
  Company Number: PHHO2005CA16629

PATIENT
  Age: 76 Year
  Weight: 41 kg

DRUGS (11)
  1. EXELON [Suspect]
     Indication: DEMENTIA ALZHEIMER'S TYPE
     Dosage: 3 MG, BID
     Dates: start: 20050726, end: 20050915
  2. VITAMIN B-12 [Concomitant]
     Dosage: UNK, QMO
  3. CELEXA [Concomitant]
     Dosage: 40 MG, UNK
  4. METFORMIN [Concomitant]
     Dosage: 500 MG, TID
  5. METOPROLOL [Concomitant]
     Dosage: 50 MG, BID
  6. PANTOLOC ^SOLVAY^ [Concomitant]
     Dosage: 40 MG, UNK
  7. TRAZODONE HCL [Concomitant]
     Dosage: 75 MG, UNK
  8. SEROQUEL [Concomitant]
     Dosage: 25 MG, QHS
  9. SEROQUEL [Concomitant]
     Dosage: 12.5 MG, PRN
  10. NEURONTIN [Concomitant]
     Dosage: 500 MG, QHS
  11. NORVASC [Concomitant]
     Dosage: 10 MG, UNK

REACTIONS (4)
  - BLOOD POTASSIUM DECREASED [None]
  - DELIRIUM [None]
  - PANIC DISORDER [None]
  - PERSONALITY DISORDER [None]
